FAERS Safety Report 5464086-8 (Version None)
Quarter: 2007Q3

REPORT INFORMATION
  Report Type: 
  Country: None (occurrence: None)
  Receive Date: 20070921
  Receipt Date: 20070910
  Transmission Date: 20080115
  Serious: Yes (Other)
  Sender: FDA-Public Use
  Company Number: US-ROCHE-512445

PATIENT
  Age: 62 Year
  Sex: Female
  Weight: 49.4 kg

DRUGS (6)
  1. BONIVA [Suspect]
     Indication: OSTEOPOROSIS
     Dosage: FORM REPORTED AS IV INFUSION
     Route: 042
     Dates: start: 20070820
  2. HUMALOG [Concomitant]
     Dosage: STRENGTH REPORTED AS: VARIES
     Route: 042
     Dates: start: 20010101
  3. PRILOSEC [Concomitant]
  4. ALTACE [Concomitant]
     Indication: HYPERTENSION
     Route: 048
  5. DOMPERIDONE [Concomitant]
     Indication: ILL-DEFINED DISORDER
     Dates: start: 20060101
  6. EVISTA [Concomitant]
     Indication: OSTEOPOROSIS
     Route: 048
     Dates: start: 20050101

REACTIONS (1)
  - BLOOD GLUCOSE INCREASED [None]
